FAERS Safety Report 17892962 (Version 5)
Quarter: 2022Q4

REPORT INFORMATION
  Report Type: Other
  Country: IT (occurrence: None)
  Receive Date: 20200613
  Receipt Date: 20221010
  Transmission Date: 20230113
  Serious: Yes (Other)
  Sender: FDA-Public Use
  Company Number: IT-ROCHE-2618620

PATIENT
  Age: 69 Year
  Sex: Female
  Weight: 77 kg

DRUGS (17)
  1. DOCETAXEL [Suspect]
     Active Substance: DOCETAXEL
     Indication: HER2 positive breast cancer
     Dosage: MOST RECENT DOSE PRIOR TO THE EVENT: 06/SEP/2017
     Route: 042
     Dates: start: 20170726
  2. LETROZOLE [Suspect]
     Active Substance: LETROZOLE
     Indication: HER2 positive breast cancer
     Route: 048
     Dates: start: 20180209
  3. TRASTUZUMAB [Suspect]
     Active Substance: TRASTUZUMAB
     Indication: HER2 positive breast cancer
     Dosage: MOST RECENT DOSE PRIOR TO THE EVENT: 05/JAN/2018
     Route: 042
     Dates: start: 20170726
  4. PERTUZUMAB [Suspect]
     Active Substance: PERTUZUMAB
     Indication: HER2 positive breast cancer
     Dosage: MOST RECENT DOSE PRIOR TO THE EVENT: 05/JAN/2018
     Route: 042
     Dates: start: 20170818
  5. LEVOTHYROXINE SODIUM [Concomitant]
     Active Substance: LEVOTHYROXINE SODIUM
  6. LOPERAMIDE [Concomitant]
     Active Substance: LOPERAMIDE
     Indication: Diarrhoea
     Dates: start: 20180126
  7. LOPERAMIDE [Concomitant]
     Active Substance: LOPERAMIDE
     Dates: start: 20170906
  8. TELMISARTAN [Concomitant]
     Active Substance: TELMISARTAN
     Dates: start: 20100310
  9. DULOXETINE [Concomitant]
     Active Substance: DULOXETINE
     Indication: Major depression
     Dates: start: 20190110
  10. LORAZEPAM [Concomitant]
     Active Substance: LORAZEPAM
     Indication: Major depression
     Dates: start: 20190110
  11. MIRTAZAPINE [Concomitant]
     Active Substance: MIRTAZAPINE
     Indication: Major depression
     Dates: start: 20190409
  12. VALPROIC ACID [Concomitant]
     Active Substance: VALPROIC ACID
     Dates: start: 20190128
  13. POTASSIUM ASPARTATE [Concomitant]
     Active Substance: POTASSIUM ASPARTATE
     Indication: Hypokalaemia
     Dosage: ONGOING = CHECKED
     Dates: start: 20200130
  14. MAGNESIUM SULFATE [Concomitant]
     Active Substance: MAGNESIUM SULFATE
     Indication: Hypomagnesaemia
     Dates: start: 20200403, end: 20210503
  15. SOLIFENACINA [Concomitant]
     Indication: Urinary incontinence
     Dates: start: 20200731
  16. CEFIXIME [Concomitant]
     Active Substance: CEFIXIME
     Indication: Cystitis
     Dosage: ONGOING = NOT CHECKED
     Dates: start: 20200102, end: 20200106
  17. CHLORPHENIRAMINE MALEATE [Concomitant]
     Active Substance: CHLORPHENIRAMINE MALEATE
     Dates: start: 20170726

REACTIONS (1)
  - Hypokalaemia [Recovered/Resolved]

NARRATIVE: CASE EVENT DATE: 20200130
